FAERS Safety Report 16772326 (Version 4)
Quarter: 2019Q4

REPORT INFORMATION
  Report Type: Spontaneous
  Country: US (occurrence: US)
  Receive Date: 20190904
  Receipt Date: 20191121
  Transmission Date: 20200122
  Serious: Yes (Hospitalization)
  Sender: FDA-Public Use
  Company Number: US-STRONGBRIDGE BIOPHARMA-2019-STR-000136

PATIENT
  Age: 22 Year
  Sex: Female

DRUGS (3)
  1. KEVEYIS [Suspect]
     Active Substance: DICHLORPHENAMIDE
     Indication: BARTTER^S SYNDROME
     Dosage: 50 MG, BID
     Route: 048
     Dates: start: 20190405
  2. KEVEYIS [Suspect]
     Active Substance: DICHLORPHENAMIDE
     Indication: FAMILIAL PERIODIC PARALYSIS
     Dosage: 50 MG, BID
     Route: 048
     Dates: start: 20190405, end: 20190825
  3. ZOFRAN [Concomitant]
     Active Substance: ONDANSETRON HYDROCHLORIDE
     Indication: PRODUCT USED FOR UNKNOWN INDICATION
     Dosage: 4 MG EVERY 8 HOURS AS NEEDED

REACTIONS (7)
  - Blood potassium decreased [Unknown]
  - Palpitations [Unknown]
  - Blood phosphorus decreased [Unknown]
  - Paraesthesia [Not Recovered/Not Resolved]
  - Blood magnesium decreased [Unknown]
  - Blood potassium decreased [Not Recovered/Not Resolved]
  - Muscle spasms [Unknown]

NARRATIVE: CASE EVENT DATE: 2019
